FAERS Safety Report 7487898-8 (Version None)
Quarter: 2011Q2

REPORT INFORMATION
  Report Type: 
  Country: None (occurrence: None)
  Receive Date: 20110518
  Receipt Date: 20110506
  Transmission Date: 20111010
  Serious: Yes (Death)
  Sender: FDA-Public Use
  Company Number: US-PFIZER INC-2011080273

PATIENT
  Age: 67 Year
  Sex: Female

DRUGS (1)
  1. TORISEL [Suspect]
     Indication: CERVIX CARCINOMA
     Dosage: 25 MG, OVER 30MINS DAYS 1,8,15,22 OF A 28 DAY CYCLE
     Route: 042
     Dates: start: 20101126, end: 20110304

REACTIONS (1)
  - DEATH [None]
